FAERS Safety Report 11222444 (Version 2)
Quarter: 2015Q3

REPORT INFORMATION
  Report Type: Spontaneous
  Country: US (occurrence: US)
  Receive Date: 20150626
  Receipt Date: 20150720
  Transmission Date: 20151125
  Serious: Yes (Other)
  Sender: FDA-Public Use
  Company Number: US-PFIZER INC-2015210557

PATIENT
  Age: 68 Year
  Sex: Female
  Weight: 39.46 kg

DRUGS (5)
  1. DILANTIN [Suspect]
     Active Substance: PHENYTOIN
     Indication: MUSCLE SPASMS
     Dosage: 100 MG, 3X/DAY
     Dates: start: 196312
  2. DILANTIN [Suspect]
     Active Substance: PHENYTOIN
     Dosage: 100 MG, 1X/DAY
     Dates: start: 20150501
  3. NIACIN. [Concomitant]
     Active Substance: NIACIN
     Dosage: UNK
     Dates: start: 1963
  4. THERAGRAN [Concomitant]
     Active Substance: VITAMINS
     Dosage: UNK
     Dates: start: 1963
  5. VITAMIN B12 [Concomitant]
     Active Substance: CYANOCOBALAMIN
     Dosage: UNK
     Dates: start: 1963

REACTIONS (6)
  - Blood glucose increased [Not Recovered/Not Resolved]
  - Drug ineffective [Recovered/Resolved]
  - Asthenia [Recovered/Resolved]
  - Fatigue [Recovered/Resolved]
  - Weight decreased [Unknown]
  - Drug intolerance [Recovered/Resolved]

NARRATIVE: CASE EVENT DATE: 201410
